FAERS Safety Report 6082137-7 (Version None)
Quarter: 2009Q1

REPORT INFORMATION
  Report Type: 
  Country: None (occurrence: None)
  Receive Date: 20090126
  Receipt Date: 20080409
  Transmission Date: 20090719
  Serious: Yes (Hospitalization)
  Sender: FDA-Public Use
  Company Number: WAES 0804USA02525

PATIENT

DRUGS (2)
  1. INVANZ [Suspect]
     Dosage: IV
     Route: 042
  2. [THERAPY UNSPECIFIED] [Concomitant]

REACTIONS (1)
  - CONVULSION [None]
